FAERS Safety Report 20535234 (Version 3)
Quarter: 2024Q2

REPORT INFORMATION
  Report Type: Other
  Country: US (occurrence: None)
  Receive Date: 20220302
  Receipt Date: 20240522
  Transmission Date: 20240715
  Serious: Yes (Hospitalization)
  Sender: FDA-Public Use
  Company Number: US-ROCHE-3032432

PATIENT
  Age: 67 Year
  Sex: Female

DRUGS (24)
  1. ACTEMRA [Suspect]
     Active Substance: TOCILIZUMAB
     Indication: Giant cell arteritis
     Dosage: INJECT 162MG SUBCUTANEOUSLY EVERY 7 DAY(S)
     Route: 058
     Dates: start: 202009
  2. ACTEMRA [Suspect]
     Active Substance: TOCILIZUMAB
  3. ACTEMRA [Suspect]
     Active Substance: TOCILIZUMAB
     Route: 058
     Dates: start: 20230727
  4. ACTEMRA [Suspect]
     Active Substance: TOCILIZUMAB
  5. XARELTO [Suspect]
     Active Substance: RIVAROXABAN
     Indication: Product used for unknown indication
     Route: 065
     Dates: start: 2020
  6. TYMLOS [Concomitant]
     Active Substance: ABALOPARATIDE
  7. XANAX [Concomitant]
     Active Substance: ALPRAZOLAM
  8. ASPIRIN [Concomitant]
     Active Substance: ASPIRIN
  9. BIOTIN [Concomitant]
     Active Substance: BIOTIN
  10. CALCIUM CITRATE [Concomitant]
     Active Substance: CALCIUM CITRATE
  11. CLONAZEPAM [Concomitant]
     Active Substance: CLONAZEPAM
  12. LOTRISONE [Concomitant]
     Active Substance: BETAMETHASONE DIPROPIONATE\CLOTRIMAZOLE
  13. FLEXERIL [Concomitant]
     Active Substance: CYCLOBENZAPRINE HYDROCHLORIDE
  14. NUPERCAINAL [Concomitant]
     Active Substance: DIBUCAINE
  15. FAMOTIDINE [Concomitant]
     Active Substance: FAMOTIDINE
  16. FOLVITE [Concomitant]
     Active Substance: FOLIC ACID
  17. NEURONTIN [Concomitant]
     Active Substance: GABAPENTIN
  18. LIDOCAINE [Concomitant]
     Active Substance: LIDOCAINE
  19. ROBAXIN [Concomitant]
     Active Substance: METHOCARBAMOL
  20. ZOFRAN [Concomitant]
     Active Substance: ONDANSETRON HYDROCHLORIDE
  21. GLYCOLAX [Concomitant]
     Active Substance: POLYETHYLENE GLYCOL 3350
  22. CRESTOR [Concomitant]
     Active Substance: ROSUVASTATIN CALCIUM
  23. TOPAMAX [Concomitant]
     Active Substance: TOPIRAMATE
  24. COUMADIN [Concomitant]
     Active Substance: WARFARIN SODIUM

REACTIONS (3)
  - Fall [Unknown]
  - Hip fracture [Recovered/Resolved]
  - Femur fracture [Recovered/Resolved]

NARRATIVE: CASE EVENT DATE: 20220201
